FAERS Safety Report 24366750 (Version 1)
Quarter: 2024Q3

REPORT INFORMATION
  Report Type: Report from Study
  Country: US (occurrence: US)
  Receive Date: 20240926
  Receipt Date: 20240926
  Transmission Date: 20241017
  Serious: Yes (Other)
  Sender: CHEPLAPHARM
  Company Number: US-ROCHE-10000085147

PATIENT
  Age: 65 Year
  Sex: Male

DRUGS (4)
  1. CAPECITABINE [Suspect]
     Active Substance: CAPECITABINE
     Indication: Hepatocellular carcinoma
     Dosage: TWICE DAILY ON DAY 1 THROUGH TO DAY 14?DAILY DOSE: 1650 MILLIGRAM/M?
     Route: 048
  2. OXALIPLATIN [Suspect]
     Active Substance: OXALIPLATIN
     Indication: Hepatocellular carcinoma
     Dosage: DAY 1
     Route: 042
  3. BEVACIZUMAB [Suspect]
     Active Substance: BEVACIZUMAB
     Indication: Hepatocellular carcinoma
     Dosage: ON DAY 1
     Route: 042
  4. SORAFENIB [Concomitant]
     Active Substance: SORAFENIB
     Dosage: DAILY DOSE: 400 MILLIGRAM
     Route: 048
     Dates: start: 201602

REACTIONS (4)
  - Fatigue [Unknown]
  - Ascites [Unknown]
  - Oedema [Unknown]
  - Off label use [Unknown]
